FAERS Safety Report 20316674 (Version 1)
Quarter: 2022Q1

REPORT INFORMATION
  Report Type: Spontaneous
  Country: TR (occurrence: TR)
  Receive Date: 20220110
  Receipt Date: 20220110
  Transmission Date: 20220423
  Serious: Yes (Hospitalization, Other)
  Sender: FDA-Public Use
  Company Number: TR-WOCKHARDT BIO AG-2021WBA000023

PATIENT
  Age: 5 Day
  Sex: Male
  Weight: 3.25 kg

DRUGS (1)
  1. VALPROIC ACID [Suspect]
     Active Substance: VALPROIC ACID
     Indication: Product used for unknown indication
     Dosage: UNK
     Route: 015

REACTIONS (3)
  - Arteriovenous fistula [Recovering/Resolving]
  - Foetal anticonvulsant syndrome [Recovering/Resolving]
  - Exposure during pregnancy [Unknown]
